FAERS Safety Report 8310604-1 (Version None)
Quarter: 2012Q2

REPORT INFORMATION
  Report Type: 
  Country: None (occurrence: None)
  Receive Date: 20120425
  Receipt Date: 20120425
  Transmission Date: 20120825
  Serious: Yes (Other)
  Sender: FDA-Public Use
  Company Number: None

PATIENT
  Sex: Female
  Weight: 81.646 kg

DRUGS (3)
  1. ZIPRASIDONE HYDROCHLORIDE [Concomitant]
     Dosage: 20MG
  2. ZIPRASIDONE HCL [Suspect]
     Indication: BIPOLAR DISORDER
     Dosage: 80MG
     Route: 048
     Dates: start: 20110419, end: 20120424
  3. ZIPRASIDONE HCL [Suspect]
     Indication: MANIA
     Dosage: 80MG
     Route: 048
     Dates: start: 20110419, end: 20120424

REACTIONS (2)
  - DYSKINESIA [None]
  - PRODUCT SUBSTITUTION ISSUE [None]
